FAERS Safety Report 5076312-8 (Version None)
Quarter: 2006Q3

REPORT INFORMATION
  Report Type: 
  Country: None (occurrence: None)
  Receive Date: 20060804
  Receipt Date: 20060726
  Transmission Date: 20061208
  Serious: Yes (Life-Threatening, Hospitalization, Other)
  Sender: FDA-Public Use
  Company Number: 2005147299

PATIENT
  Age: 62 Year
  Sex: Female
  Weight: 88 kg

DRUGS (5)
  1. ZELDOX     (ZIIPRASIDONE) [Suspect]
     Indication: ANXIETY DISORDER
     Dosage: 80 MG (2 IN 1 D), ORAL
     Route: 048
     Dates: start: 20041101, end: 20050314
  2. ZELDOX     (ZIIPRASIDONE) [Suspect]
     Indication: DEPRESSIVE DELUSION
     Dosage: 80 MG (2 IN 1 D), ORAL
     Route: 048
     Dates: start: 20041101, end: 20050314
  3. LITHIUM CARBONATE [Concomitant]
  4. MIRTAZAPINE [Concomitant]
  5. RAMIPRIL [Concomitant]

REACTIONS (4)
  - DIABETES MELLITUS NON-INSULIN-DEPENDENT [None]
  - DIABETIC KETOACIDOTIC HYPERGLYCAEMIC COMA [None]
  - ELECTROCARDIOGRAM QT PROLONGED [None]
  - TACHYCARDIA [None]
